FAERS Safety Report 12724728 (Version 3)
Quarter: 2016Q3

REPORT INFORMATION
  Report Type: Spontaneous
  Country: IT (occurrence: IT)
  Receive Date: 20160908
  Receipt Date: 20160922
  Transmission Date: 20161109
  Serious: Yes (Hospitalization)
  Sender: FDA-Public Use
  Company Number: IT-PFIZER INC-2016418528

PATIENT
  Age: 32 Year
  Sex: Female

DRUGS (4)
  1. TAVOR (LORAZEPAM) [Suspect]
     Active Substance: LORAZEPAM
     Dosage: 10 DF, SINGLE
     Route: 048
     Dates: start: 20160722, end: 20160722
  2. SERTRALINE HCL [Suspect]
     Active Substance: SERTRALINE HYDROCHLORIDE
     Indication: DEPRESSION
     Dosage: UNK
     Route: 048
  3. TAVOR (LORAZEPAM) [Suspect]
     Active Substance: LORAZEPAM
     Indication: DEPRESSION
     Dosage: UNK
     Route: 048
  4. SERTRALINE HCL [Suspect]
     Active Substance: SERTRALINE HYDROCHLORIDE
     Dosage: 15 DF, SINGLE
     Route: 048
     Dates: start: 20160722, end: 20160722

REACTIONS (2)
  - Intentional overdose [Unknown]
  - Intentional self-injury [Unknown]

NARRATIVE: CASE EVENT DATE: 20160722
